FAERS Safety Report 6684128-1 (Version None)
Quarter: 2010Q2

REPORT INFORMATION
  Report Type: 
  Country: None (occurrence: None)
  Receive Date: 20100416
  Receipt Date: 20100408
  Transmission Date: 20101027
  Serious: Yes (Disabling, Other)
  Sender: FDA-Public Use
  Company Number: PHHY2009DE09700

PATIENT
  Sex: Female
  Weight: 80 kg

DRUGS (2)
  1. ACLASTA [Suspect]
     Indication: OSTEOPOROSIS
     Dosage: 5 MG ONCE YEARLY
     Route: 042
     Dates: start: 20071214
  2. ACLASTA [Suspect]
     Indication: SPINAL FRACTURE
     Dosage: 5 MG ONCE YEARLY
     Route: 042
     Dates: start: 20081027

REACTIONS (5)
  - BACK PAIN [None]
  - OSTEONECROSIS [None]
  - PAIN IN JAW [None]
  - TOOTH EXTRACTION [None]
  - X-RAY DENTAL [None]
